FAERS Safety Report 6828205-0 (Version None)
Quarter: 2010Q3

REPORT INFORMATION
  Report Type: 
  Country: None (occurrence: None)
  Receive Date: 20100709
  Receipt Date: 20070202
  Transmission Date: 20110219
  Serious: No
  Sender: FDA-Public Use
  Company Number: US-PFIZER INC-2007010625

PATIENT
  Sex: Female
  Weight: 72.57 kg

DRUGS (4)
  1. CHANTIX [Suspect]
     Indication: SMOKING CESSATION THERAPY
     Dates: start: 20070119
  2. PAXIL [Concomitant]
  3. TIOTROPIUM BROMIDE [Concomitant]
     Indication: CHRONIC OBSTRUCTIVE PULMONARY DISEASE
  4. MELATONIN [Concomitant]

REACTIONS (5)
  - DYSPNOEA [None]
  - HOT FLUSH [None]
  - INSOMNIA [None]
  - MENOPAUSE DELAYED [None]
  - MOOD SWINGS [None]
